FAERS Safety Report 8882665 (Version 1)
Quarter: 2012Q4

REPORT INFORMATION
  Report Type: 
  Country: GB (occurrence: GB)
  Receive Date: 20121102
  Receipt Date: 20121102
  Transmission Date: 20130627
  Serious: Yes (Life-Threatening)
  Sender: FDA-Public Use
  Company Number: PHHY2012GB099236

PATIENT
  Age: 28 Year
  Sex: Male
  Weight: 65.8 kg

DRUGS (1)
  1. PHENOXYMETHYLPENICILLIN [Suspect]
     Dates: start: 20121019

REACTIONS (1)
  - Asphyxia [Recovered/Resolved]
